FAERS Safety Report 7130590-X (Version None)
Quarter: 2010Q4

REPORT INFORMATION
  Report Type: 
  Country: None (occurrence: None)
  Receive Date: 20101101
  Receipt Date: 20100903
  Transmission Date: 20110411
  Serious: No
  Sender: FDA-Public Use
  Company Number: 2010-11844

PATIENT
  Age: 68 Year
  Sex: Male
  Weight: 63.5 kg

DRUGS (3)
  1. RAPAFLO [Suspect]
     Indication: POLLAKIURIA
     Dosage: 8 MG, DAILY, ORAL
     Route: 048
     Dates: start: 20100827
  2. ALCOHOL /00002101/ (ETHANOL) [Suspect]
     Indication: ALCOHOL USE
     Dosage: ORAL
     Route: 048
     Dates: start: 20100902
  3. DRAMAMINE /00019501/ (DIMENHYDRINATE) [Concomitant]

REACTIONS (2)
  - DIZZINESS [None]
  - HEART RATE DECREASED [None]
